FAERS Safety Report 6344646-2 (Version None)
Quarter: 2009Q3

REPORT INFORMATION
  Report Type: 
  Country: None (occurrence: None)
  Receive Date: 20090908
  Receipt Date: 20090831
  Transmission Date: 20100115
  Serious: Yes (Hospitalization, Other)
  Sender: FDA-Public Use
  Company Number: IL-AMGEN-UK361857

PATIENT
  Age: 61 Year
  Sex: Female
  Weight: 52 kg

DRUGS (5)
  1. VECTIBIX [Suspect]
     Indication: COLORECTAL CANCER
     Route: 042
     Dates: start: 20090720
  2. ESCITALOPRAM [Concomitant]
     Route: 065
     Dates: start: 20040101
  3. TRANEXAMIC ACID [Concomitant]
     Route: 065
     Dates: start: 20010101
  4. CLEXANE [Concomitant]
     Route: 065
     Dates: start: 20090401
  5. LEVOTHYROXINE [Concomitant]
     Route: 065
     Dates: start: 20040101

REACTIONS (3)
  - NAUSEA [None]
  - SMALL INTESTINAL OBSTRUCTION [None]
  - VOMITING [None]
